FAERS Safety Report 18241258 (Version 3)
Quarter: 2020Q4

REPORT INFORMATION
  Report Type: Spontaneous
  Country: IE (occurrence: IE)
  Receive Date: 20200908
  Receipt Date: 20201118
  Transmission Date: 20210113
  Serious: Yes (Other)
  Sender: FDA-Public Use
  Company Number: IE-GLAXOSMITHKLINE-IE2020EME160980

PATIENT
  Sex: Male

DRUGS (2)
  1. ACITRETIN. [Suspect]
     Active Substance: ACITRETIN
     Indication: ICHTHYOSIS
     Dosage: 10 MG, QD
     Dates: start: 2009
  2. ACITRETIN. [Suspect]
     Active Substance: ACITRETIN
     Dosage: 5 MG, QD

REACTIONS (11)
  - Madarosis [Unknown]
  - Skin exfoliation [Unknown]
  - Adverse drug reaction [Unknown]
  - Neuropathy peripheral [Unknown]
  - Limb discomfort [Unknown]
  - Rash [Unknown]
  - Arrhythmia [Unknown]
  - Diffuse idiopathic skeletal hyperostosis [Unknown]
  - Product use issue [Unknown]
  - Alopecia [Unknown]
  - Pruritus [Unknown]
